FAERS Safety Report 9133179 (Version 1)
Quarter: 2013Q1

REPORT INFORMATION
  Report Type: Spontaneous
  Country: DK (occurrence: DK)
  Receive Date: 20130301
  Receipt Date: 20130301
  Transmission Date: 20140127
  Serious: Yes (Death, Other)
  Sender: FDA-Public Use
  Company Number: DK-ASTRAZENECA-2004SE06147

PATIENT
  Age: 19 Year
  Sex: Male
  Weight: 90 kg

DRUGS (14)
  1. SEROQUEL [Suspect]
     Indication: PSYCHOTIC DISORDER
     Route: 048
  2. SEROQUEL [Suspect]
     Indication: SCHIZOPHRENIA
     Route: 048
  3. SEROQUEL [Suspect]
     Indication: PSYCHOTIC DISORDER
     Route: 048
     Dates: start: 20021011, end: 20030413
  4. SEROQUEL [Suspect]
     Indication: SCHIZOPHRENIA
     Route: 048
     Dates: start: 20021011, end: 20030413
  5. RIVOTRIL [Suspect]
     Indication: SCHIZOPHRENIA
     Route: 048
     Dates: start: 20020310
  6. RIVOTRIL [Suspect]
     Indication: SCHIZOPHRENIA
     Route: 048
     Dates: start: 20030107, end: 20030413
  7. SUBUTEX [Suspect]
     Route: 065
  8. TRUXAL [Suspect]
     Indication: SCHIZOPHRENIA
     Dosage: 100 OR 200 MG TWO TO THREE TIMES DAILY
     Route: 048
     Dates: start: 20010126
  9. TRUXAL [Suspect]
     Indication: SCHIZOPHRENIA
     Dosage: 100 OR 200 MG TWO TO THREE TIMES DAILY
     Route: 048
     Dates: start: 20030107, end: 20030413
  10. BURONIL [Suspect]
     Indication: SCHIZOPHRENIA
     Dosage: 50 OR 100 MG THREE OR FOUR TIMES A DAY, MAX 300 MG A DAY
     Route: 048
     Dates: start: 20030404, end: 20030413
  11. IMOVANE [Suspect]
     Indication: SCHIZOPHRENIA
     Route: 048
     Dates: start: 20010126, end: 20030413
  12. ZYPREXA [Suspect]
     Indication: SCHIZOPHRENIA
     Route: 048
     Dates: start: 20010129, end: 20020506
  13. CISORDINOL DEPOT [Suspect]
     Indication: SCHIZOPHRENIA
     Route: 065
     Dates: start: 20020814, end: 20020926
  14. CISORDINOL [Suspect]
     Indication: SCHIZOPHRENIA
     Dosage: 10 MG OR 30MG QD
     Route: 048
     Dates: start: 20010216, end: 20021029

REACTIONS (9)
  - Sudden death [Fatal]
  - Convulsion [Unknown]
  - Gingival bleeding [Unknown]
  - Obesity [Unknown]
  - Restlessness [Unknown]
  - Tension [Unknown]
  - Vomiting [Unknown]
  - Back pain [Unknown]
  - Visual acuity reduced [Unknown]
